FAERS Safety Report 5202093-0 (Version None)
Quarter: 2007Q1

REPORT INFORMATION
  Report Type: 
  Country: None (occurrence: None)
  Receive Date: 20070103
  Receipt Date: 20061222
  Transmission Date: 20070707
  Serious: Yes (Life-Threatening)
  Sender: FDA-Public Use
  Company Number: DEWYE833214DEC06

PATIENT
  Age: 67 Year
  Sex: Male

DRUGS (10)
  1. TYGACIL [Suspect]
     Indication: SEPSIS
     Dosage: 50 MG 2 X PER 1 DAY, INTRAVENOUS
     Route: 042
     Dates: start: 20061208, end: 20061216
  2. DICLOFENAC (DICLOFENAC) [Concomitant]
  3. ENALAPRIL MALEATE [Concomitant]
  4. HYDROCHLOROTHIAZIDE [Concomitant]
  5. DIGOXIN [Concomitant]
  6. METFORMIN HYDROCHLORIDE [Concomitant]
  7. LASIX [Concomitant]
  8. ASPIRIN [Concomitant]
  9. NORVASC [Concomitant]
  10. INSULIN [Concomitant]

REACTIONS (2)
  - ATRIAL FIBRILLATION [None]
  - GRANULOCYTOPENIA [None]
